FAERS Safety Report 4744861-5 (Version None)
Quarter: 2005Q3

REPORT INFORMATION
  Report Type: 
  Country: None (occurrence: None)
  Receive Date: 20050815
  Receipt Date: 20050804
  Transmission Date: 20060218
  Serious: Yes (Death, Hospitalization)
  Sender: FDA-Public Use
  Company Number: ES-GLAXOSMITHKLINE-B0390229A

PATIENT
  Age: 92 Year
  Sex: Male

DRUGS (6)
  1. AUGMENTIN '125' [Suspect]
     Indication: DRUG USE FOR UNKNOWN INDICATION
     Route: 048
     Dates: start: 20050101, end: 20050330
  2. CIPROFLOXACIN HCL [Concomitant]
     Route: 048
     Dates: start: 20050331, end: 20050408
  3. PARACETAMOL [Concomitant]
     Route: 048
     Dates: start: 20050425, end: 20050425
  4. PHYTOTHERAPY [Concomitant]
     Dates: end: 20050429
  5. METAMIZOLE [Concomitant]
     Route: 048
     Dates: end: 20050516
  6. ENALAPRIL [Concomitant]
     Dosage: 20MG PER DAY
     Route: 048
     Dates: end: 20050516

REACTIONS (1)
  - HEPATITIS [None]
